FAERS Safety Report 9951314 (Version 4)
Quarter: 2014Q3

REPORT INFORMATION
  Report Type: Spontaneous
  Country: US (occurrence: US)
  Receive Date: 20140304
  Receipt Date: 20140922
  Transmission Date: 20150326
  Serious: Yes (Other)
  Sender: FDA-Public Use
  Company Number: US-ELI_LILLY_AND_COMPANY-US201401008036

PATIENT
  Age: 35 Year
  Sex: Female
  Weight: 68.03 kg

DRUGS (6)
  1. CYMBALTA [Suspect]
     Active Substance: DULOXETINE HYDROCHLORIDE
     Dosage: 20 MG, UNKNOWN
     Route: 065
     Dates: start: 20131220, end: 20131226
  2. CYMBALTA [Suspect]
     Active Substance: DULOXETINE HYDROCHLORIDE
     Indication: DEPRESSION
     Dosage: 20 MG, UNKNOWN
     Route: 065
     Dates: start: 20111027
  3. CYMBALTA [Suspect]
     Active Substance: DULOXETINE HYDROCHLORIDE
     Dosage: 40 MG, UNKNOWN
     Route: 065
     Dates: start: 20131031
  4. CLONAZEPAM. [Concomitant]
     Active Substance: CLONAZEPAM
     Indication: INSOMNIA
     Dosage: UNK, UNKNOWN
     Route: 065
  5. CYMBALTA [Suspect]
     Active Substance: DULOXETINE HYDROCHLORIDE
     Dosage: 60 MG, QD
     Route: 065
     Dates: start: 20120529, end: 20131030
  6. CYMBALTA [Suspect]
     Active Substance: DULOXETINE HYDROCHLORIDE
     Dosage: 20 MG, UNKNOWN
     Route: 065
     Dates: end: 20131215

REACTIONS (11)
  - Drug withdrawal syndrome [Recovered/Resolved]
  - Disorientation [Recovered/Resolved]
  - Exposure during pregnancy [Recovered/Resolved]
  - Depression [Recovered/Resolved]
  - Autophobia [Recovered/Resolved]
  - Eye disorder [Recovered/Resolved]
  - Headache [Recovered/Resolved]
  - Lethargy [Recovered/Resolved]
  - Suicidal ideation [Recovered/Resolved]
  - Nausea [Recovered/Resolved]
  - Vomiting [Recovered/Resolved]

NARRATIVE: CASE EVENT DATE: 20131216
